FAERS Safety Report 5316860-6 (Version None)
Quarter: 2007Q2

REPORT INFORMATION
  Report Type: 
  Country: None (occurrence: None)
  Receive Date: 20070501
  Receipt Date: 20070501
  Transmission Date: 20071010
  Serious: Yes (Life-Threatening, Hospitalization)
  Sender: FDA-Public Use
  Company Number: None

PATIENT
  Age: 73 Year
  Sex: Male
  Weight: 80.7403 kg

DRUGS (7)
  1. CLARITHROMYCIN [Suspect]
     Indication: HELICOBACTER INFECTION
     Dosage: 500 MG   BID
     Dates: start: 20070322, end: 20070401
  2. LOVASTATIN [Suspect]
     Dosage: 10 MG   DAILY
     Dates: start: 20021023, end: 20070430
  3. ALLOPURINOL [Concomitant]
  4. HYDROCHLOROTHIAZIDE [Concomitant]
  5. ATENOLOL [Concomitant]
  6. COLCHICINE [Concomitant]
  7. HYDROXYZINE [Concomitant]

REACTIONS (3)
  - HYPERKALAEMIA [None]
  - RENAL INJURY [None]
  - RHABDOMYOLYSIS [None]
